FAERS Safety Report 10185029 (Version 1)
Quarter: 2014Q2

REPORT INFORMATION
  Report Type: Spontaneous
  Country: US (occurrence: None)
  Receive Date: 20140520
  Receipt Date: 20140520
  Transmission Date: 20141212
  Serious: Yes (Hospitalization)
  Sender: FDA-Public Use
  Company Number: None

PATIENT
  Age: 71 Year
  Sex: Female

DRUGS (7)
  1. NAPROXEN [Suspect]
     Indication: HEADACHE
     Route: 048
     Dates: start: 20121113
  2. FERROUS SULFATE [Concomitant]
  3. FUROSEMIDE [Concomitant]
  4. LISINOPRIL [Concomitant]
  5. LISINOPRIL [Suspect]
  6. METFORMIN [Suspect]
  7. OXYCONTIN [Concomitant]

REACTIONS (8)
  - Anaemia [None]
  - Dyspnoea exertional [None]
  - Haematochezia [None]
  - Abdominal pain upper [None]
  - Chest pain [None]
  - Fatigue [None]
  - Headache [None]
  - Back pain [None]
